FAERS Safety Report 9496474 (Version 1)
Quarter: 2013Q3

REPORT INFORMATION
  Report Type: Spontaneous
  Country: US (occurrence: None)
  Receive Date: 20130829
  Receipt Date: 20130829
  Transmission Date: 20140515
  Serious: Yes (Other)
  Sender: FDA-Public Use
  Company Number: UTC-036859

PATIENT
  Sex: 0

DRUGS (3)
  1. REMODULIN (INJECTION FOR INFUSION) (TREPROSTINIL SODIUM) [Suspect]
     Indication: PRODUCT USED FOR UNKNOWN INDICATION
     Dosage: (0.091 UG/KG, 1 IN 1 MIN)
     Route: 041
  2. BOSENTAN [Concomitant]
  3. NITRIC OXIDE [Concomitant]

REACTIONS (6)
  - Pulmonary arterial hypertension [None]
  - Renal failure acute [None]
  - Hypotension [None]
  - Mitral valve repair [None]
  - Haemodialysis [None]
  - Condition aggravated [None]
